FAERS Safety Report 25867858 (Version 1)
Quarter: 2025Q4

REPORT INFORMATION
  Report Type: Spontaneous
  Country: RU (occurrence: RU)
  Receive Date: 20251001
  Receipt Date: 20251001
  Transmission Date: 20260118
  Serious: Yes (Other)
  Sender: ROCHE
  Company Number: RU-ROCHE-10000397967

PATIENT
  Age: 1 Month
  Sex: Female

DRUGS (2)
  1. ENTRECTINIB [Suspect]
     Active Substance: ENTRECTINIB
     Indication: Disease progression
     Route: 065
     Dates: start: 201912, end: 202508
  2. ENTRECTINIB [Suspect]
     Active Substance: ENTRECTINIB
     Indication: Metastasis

REACTIONS (1)
  - Ill-defined disorder [Unknown]
